FAERS Safety Report 6135483-2 (Version None)
Quarter: 2009Q1

REPORT INFORMATION
  Report Type: 
  Country: None (occurrence: None)
  Receive Date: 20090327
  Receipt Date: 20090320
  Transmission Date: 20090719
  Serious: Yes (Hospitalization)
  Sender: FDA-Public Use
  Company Number: A0775422A

PATIENT
  Sex: Male

DRUGS (7)
  1. AVANDIA [Suspect]
     Dosage: 4MG TWICE PER DAY
     Route: 048
     Dates: start: 20050527, end: 20070214
  2. AVANDAMET [Suspect]
     Route: 048
     Dates: start: 20030927, end: 20050526
  3. METFORMIN [Concomitant]
     Dosage: 1000MG TWICE PER DAY
     Dates: start: 20050527
  4. PRANDIN [Concomitant]
     Dates: start: 20030918, end: 20040115
  5. GLARGINE [Concomitant]
     Dates: start: 20010709
  6. LIPITOR [Concomitant]
     Dates: start: 20000204, end: 20040804
  7. TRICOR [Concomitant]
     Dates: start: 20020726, end: 20031210

REACTIONS (2)
  - CARDIAC DISORDER [None]
  - MYOCARDIAL INFARCTION [None]
